FAERS Safety Report 8921422 (Version 1)
Quarter: 2012Q4

REPORT INFORMATION
  Report Type: 
  Country: IT (occurrence: IT)
  Receive Date: 20121121
  Receipt Date: 20121121
  Transmission Date: 20130627
  Serious: Yes (Other)
  Sender: FDA-Public Use
  Company Number: IT-JNJFOC-20121106983

PATIENT
  Age: 39 Year
  Sex: Female
  Weight: 80 kg

DRUGS (6)
  1. INVEGA [Suspect]
     Indication: PRODUCT USED FOR UNKNOWN INDICATION
     Route: 048
  2. INVEGA [Suspect]
     Indication: PRODUCT USED FOR UNKNOWN INDICATION
     Route: 048
  3. AKINETON [Suspect]
     Indication: PRODUCT USED FOR UNKNOWN INDICATION
  4. PROMAZINE [Suspect]
     Indication: PRODUCT USED FOR UNKNOWN INDICATION
  5. TOLEP [Suspect]
     Indication: PRODUCT USED FOR UNKNOWN INDICATION
  6. CARBOLITHIUM [Suspect]
     Indication: PRODUCT USED FOR UNKNOWN INDICATION

REACTIONS (4)
  - Self injurious behaviour [Unknown]
  - Overdose [Unknown]
  - Tachycardia [Unknown]
  - Sopor [Unknown]
